FAERS Safety Report 9004790 (Version 2)
Quarter: 2013Q1

REPORT INFORMATION
  Report Type: Spontaneous
  Country: US (occurrence: US)
  Receive Date: 20130109
  Receipt Date: 20130225
  Transmission Date: 20140127
  Serious: No
  Sender: FDA-Public Use
  Company Number: US-PFIZER INC-2013008620

PATIENT
  Age: 31 Year
  Sex: Female
  Weight: 81.63 kg

DRUGS (4)
  1. PRISTIQ [Suspect]
     Indication: MAJOR DEPRESSION
     Dosage: 50 MG, 1X/DAY
     Route: 048
     Dates: start: 201211, end: 201301
  2. PRISTIQ [Suspect]
     Dosage: 50 MG, 2X/DAY
     Dates: start: 201301
  3. SEROQUEL [Concomitant]
     Dosage: 150 MG, UNK
  4. BUSPAR [Concomitant]
     Dosage: 50 MG, 3X/DAY

REACTIONS (2)
  - Drug screen false positive [Unknown]
  - Drug screen false positive [Unknown]
